FAERS Safety Report 5092323-0 (Version None)
Quarter: 2006Q3

REPORT INFORMATION
  Report Type: 
  Country: None (occurrence: None)
  Receive Date: 20060825
  Receipt Date: 20060814
  Transmission Date: 20061208
  Serious: Yes (Other)
  Sender: FDA-Public Use
  Company Number: HQWYE038815APR05

PATIENT
  Age: 60 Year
  Sex: Female
  Weight: 74.3 kg

DRUGS (1)
  1. MYLOTARG [Suspect]
     Indication: ACUTE MYELOID LEUKAEMIA
     Dosage: A SINGLE 11 MG DOSE, INTRAVENOUS
     Route: 042
     Dates: start: 20050120, end: 20050120

REACTIONS (1)
  - VENOOCCLUSIVE LIVER DISEASE [None]
